FAERS Safety Report 4925032-6 (Version None)
Quarter: 2006Q1

REPORT INFORMATION
  Report Type: 
  Country: None (occurrence: None)
  Receive Date: 20060222
  Receipt Date: 20060208
  Transmission Date: 20060701
  Serious: Yes (Hospitalization, Other)
  Sender: FDA-Public Use
  Company Number: MEDI-0004139

PATIENT
  Age: 83 Year
  Sex: Male

DRUGS (6)
  1. ETHYOL [Suspect]
     Indication: RADIOTHERAPY
     Dosage: 500 MG, SUBCUTANEOUS
     Route: 058
     Dates: start: 20051214, end: 20060120
  2. RADIATION THERAPY [Concomitant]
  3. ROSIGLITAZONE [Concomitant]
  4. PLAVIX [Concomitant]
  5. ZOCOR [Concomitant]
  6. PLENDIL [Concomitant]

REACTIONS (2)
  - DEHYDRATION [None]
  - STEVENS-JOHNSON SYNDROME [None]
